FAERS Safety Report 10425398 (Version 1)
Quarter: 2014Q3

REPORT INFORMATION
  Report Type: Spontaneous
  Country: US (occurrence: None)
  Receive Date: 20140725
  Receipt Date: 20140725
  Transmission Date: 20150326
  Serious: No
  Sender: FDA-Public Use
  Company Number: AP356-00737-SPO-US

PATIENT
  Age: 32 Year
  Sex: Female
  Weight: 76 kg

DRUGS (2)
  1. CLARITIN D (NARINE) [Concomitant]
  2. BELVIQ [Suspect]
     Active Substance: LORCASERIN HYDROCHLORIDE
     Indication: WEIGHT DECREASED
     Route: 048
     Dates: start: 20140331, end: 20140331

REACTIONS (4)
  - Somnolence [None]
  - Fatigue [None]
  - Dizziness [None]
  - Feeling hot [None]

NARRATIVE: CASE EVENT DATE: 20140331
